FAERS Safety Report 5260919-9 (Version None)
Quarter: 2007Q1

REPORT INFORMATION
  Report Type: 
  Country: None (occurrence: None)
  Receive Date: 20070309
  Receipt Date: 20070302
  Transmission Date: 20070707
  Serious: Yes (Hospitalization)
  Sender: FDA-Public Use
  Company Number: US-ROCHE-478503

PATIENT
  Sex: Female

DRUGS (3)
  1. BONIVA [Suspect]
     Indication: OSTEOPOROSIS
     Route: 048
     Dates: start: 20060915, end: 20061121
  2. MIRAPEX [Concomitant]
  3. SYNTHROID [Concomitant]
     Indication: THYROID DISORDER

REACTIONS (2)
  - GASTRIC ULCER [None]
  - OESOPHAGEAL SPASM [None]
